FAERS Safety Report 5080858-6 (Version None)
Quarter: 2006Q3

REPORT INFORMATION
  Report Type: 
  Country: None (occurrence: None)
  Receive Date: 20060810
  Receipt Date: 20060726
  Transmission Date: 20061208
  Serious: Yes (Hospitalization, Disabling, Other)
  Sender: FDA-Public Use
  Company Number: PHHO2004JP15044

PATIENT
  Age: 75 Year
  Sex: Male
  Weight: 65.9984 kg

DRUGS (8)
  1. VISUDYNE [Suspect]
     Indication: MACULAR DEGENERATION
     Dosage: 5.4 ML DAILY IV
     Route: 042
     Dates: start: 20040901, end: 20040901
  2. XALATAN [Concomitant]
  3. HYALEIN [Concomitant]
  4. CATALIN [Concomitant]
  5. ACECOL [Concomitant]
  6. SELECTOL [Concomitant]
  7. NORVASC [Concomitant]
  8. ASPIRIN [Concomitant]

REACTIONS (4)
  - POST PROCEDURAL COMPLICATION [None]
  - RETINAL HAEMORRHAGE [None]
  - RETINOPATHY PROLIFERATIVE [None]
  - VITREOUS HAEMORRHAGE [None]
